FAERS Safety Report 13835020 (Version 1)
Quarter: 2017Q3

REPORT INFORMATION
  Report Type: Spontaneous
  Country: DE (occurrence: DE)
  Receive Date: 20170804
  Receipt Date: 20170804
  Transmission Date: 20171127
  Serious: Yes (Congenital Anomaly, Other)
  Sender: FDA-Public Use
  Company Number: DE-SUN PHARMACEUTICAL INDUSTRIES LTD-2017RR-146912

PATIENT
  Age: 1 Day
  Sex: Female
  Weight: 2.82 kg

DRUGS (2)
  1. FEMIBION [Concomitant]
     Active Substance: VITAMINS
     Indication: PROPHYLAXIS OF NEURAL TUBE DEFECT
     Dosage: UNKNOWN TRIMESTER
     Route: 064
  2. VENLAFAXINE [Suspect]
     Active Substance: VENLAFAXINE HYDROCHLORIDE
     Indication: DEPRESSION
     Dosage: 37.5[MG/2-3D]/INITIAL 37.5 MG EVERY 2ND DAY, DURING THE 3RD TRIMESTER ONLY 37.5 MG EVERY THIRD D, 0
     Route: 064
     Dates: start: 20160527, end: 20170223

REACTIONS (5)
  - Atrial septal defect [Not Recovered/Not Resolved]
  - Prothrombin time prolonged [Recovered/Resolved]
  - Congenital naevus [Not Recovered/Not Resolved]
  - Patent ductus arteriosus [Unknown]
  - Respiratory disorder neonatal [Recovered/Resolved]

NARRATIVE: CASE EVENT DATE: 20170223
